FAERS Safety Report 11340761 (Version 1)
Quarter: 2015Q3

REPORT INFORMATION
  Report Type: Spontaneous
  Country: US (occurrence: None)
  Receive Date: 20150803
  Receipt Date: 20150803
  Transmission Date: 20151125
  Serious: Yes (Disabling)
  Sender: FDA-Public Use
  Company Number: None

PATIENT
  Age: 53 Year
  Sex: Male
  Weight: 134.27 kg

DRUGS (8)
  1. CARBAMAZEPINE. [Concomitant]
     Active Substance: CARBAMAZEPINE
  2. FISH OIL [Concomitant]
     Active Substance: FISH OIL
  3. VITAMIN D [Concomitant]
     Active Substance: CHOLECALCIFEROL
  4. CLONAZEPAM. [Concomitant]
     Active Substance: CLONAZEPAM
  5. DULOXETENE [Concomitant]
  6. VITAMIN B12 [Concomitant]
     Active Substance: CYANOCOBALAMIN
  7. PAROXETINE [Suspect]
     Active Substance: PAROXETINE\PAROXETINE HYDROCHLORIDE
     Indication: ANTIDEPRESSANT THERAPY
     Dosage: TAKEN BY MOUTH
     Dates: start: 20150722, end: 20150730
  8. VITAMIN B-6 [Concomitant]
     Active Substance: PYRIDOXINE

REACTIONS (6)
  - Fall [None]
  - Concussion [None]
  - Fatigue [None]
  - Syncope [None]
  - Depression [None]
  - Drug withdrawal syndrome [None]

NARRATIVE: CASE EVENT DATE: 20150723
